FAERS Safety Report 23643855 (Version 4)
Quarter: 2024Q2

REPORT INFORMATION
  Report Type: Spontaneous
  Country: US (occurrence: US)
  Receive Date: 20240318
  Receipt Date: 20240624
  Transmission Date: 20240715
  Serious: No
  Sender: FDA-Public Use
  Company Number: US-Calliditas-2024CAL00393

PATIENT
  Age: 69 Year
  Sex: Male
  Weight: 58 kg

DRUGS (4)
  1. TARPEYO [Suspect]
     Active Substance: BUDESONIDE
     Indication: IgA nephropathy
     Route: 048
     Dates: start: 20240127, end: 20240520
  2. LOSARTAN [Concomitant]
     Active Substance: LOSARTAN
  3. FUROSEMIDE [Concomitant]
     Active Substance: FUROSEMIDE
  4. FARXIGA [Concomitant]
     Active Substance: DAPAGLIFLOZIN PROPANEDIOL

REACTIONS (5)
  - Hypertension [Not Recovered/Not Resolved]
  - Swelling [Not Recovered/Not Resolved]
  - Pain [Unknown]
  - Dizziness [Unknown]
  - Swelling face [Unknown]

NARRATIVE: CASE EVENT DATE: 20240215
